FAERS Safety Report 5448752-6 (Version None)
Quarter: 2007Q3

REPORT INFORMATION
  Report Type: 
  Country: None (occurrence: None)
  Receive Date: 20070911
  Receipt Date: 20070903
  Transmission Date: 20080115
  Serious: Yes (Other)
  Sender: FDA-Public Use
  Company Number: B0486429A

PATIENT
  Age: 21 Year
  Sex: Male
  Weight: 88.9 kg

DRUGS (3)
  1. PAROXETINE [Suspect]
     Indication: ANXIETY
     Dosage: 20MG PER DAY
     Route: 048
     Dates: start: 20070804, end: 20070807
  2. DOSULEPIN [Concomitant]
     Indication: ANXIETY
     Dosage: 75MG PER DAY
     Route: 048
     Dates: start: 20070725, end: 20070807
  3. PROPRANOLOL [Concomitant]
     Indication: ANXIETY
     Dosage: 40MG THREE TIMES PER DAY
     Route: 048
     Dates: start: 20070716, end: 20070725

REACTIONS (2)
  - AGGRESSION [None]
  - SUICIDAL IDEATION [None]
